FAERS Safety Report 24325670 (Version 1)
Quarter: 2024Q3

REPORT INFORMATION
  Report Type: Spontaneous
  Country: US (occurrence: US)
  Receive Date: 20240917
  Receipt Date: 20240917
  Transmission Date: 20241017
  Serious: No
  Sender: ROCHE
  Company Number: US-ROCHE-10000082329

PATIENT
  Age: 60 Year
  Sex: Female

DRUGS (2)
  1. XOLAIR PFS [Suspect]
     Active Substance: OMALIZUMAB
     Indication: Urticaria
     Dosage: 150MG/ML
     Route: 058
  2. XOLAIR PFS [Suspect]
     Active Substance: OMALIZUMAB

REACTIONS (6)
  - Brain fog [Unknown]
  - Neck pain [Unknown]
  - Pain in jaw [Unknown]
  - Ear pain [Unknown]
  - Headache [Unknown]
  - Fatigue [Unknown]
